FAERS Safety Report 8061298-4 (Version None)
Quarter: 2012Q1

REPORT INFORMATION
  Report Type: 
  Country: None (occurrence: None)
  Receive Date: 20120120
  Receipt Date: 20110823
  Transmission Date: 20120608
  Serious: No
  Sender: FDA-Public Use
  Company Number: US-ALLERGAN-1111328US

PATIENT
  Age: 49 Year
  Sex: Female

DRUGS (2)
  1. RESTASIS [Suspect]
     Indication: DRY EYE
     Dosage: 1 GTT, BID
     Route: 047
     Dates: start: 20110801, end: 20110820
  2. THERATEARS                         /00007001/ [Concomitant]
     Indication: DRY EYE

REACTIONS (3)
  - THROAT IRRITATION [None]
  - NAUSEA [None]
  - DIZZINESS [None]
